FAERS Safety Report 17602163 (Version 1)
Quarter: 2020Q1

REPORT INFORMATION
  Report Type: Spontaneous
  Country: US (occurrence: US)
  Receive Date: 20200331
  Receipt Date: 20200331
  Transmission Date: 20200409
  Serious: No
  Sender: FDA-Public Use
  Company Number: US-ASTRAZENECA-2020SE35029

PATIENT
  Sex: Female
  Weight: 51.7 kg

DRUGS (2)
  1. METFORMIN [Concomitant]
     Active Substance: METFORMIN HYDROCHLORIDE
  2. BYETTA [Suspect]
     Active Substance: EXENATIDE
     Indication: PANCREATIC ENZYMES INCREASED
     Route: 058

REACTIONS (2)
  - Abnormal loss of weight [Unknown]
  - Off label use [Unknown]
